FAERS Safety Report 10424801 (Version 1)
Quarter: 2014Q3

REPORT INFORMATION
  Report Type: Spontaneous
  Country: SE (occurrence: SE)
  Receive Date: 20140902
  Receipt Date: 20140902
  Transmission Date: 20150326
  Serious: Yes (Other)
  Sender: FDA-Public Use
  Company Number: CHPA2014SE011261

PATIENT
  Sex: Female

DRUGS (1)
  1. NICOTINELL [Suspect]
     Active Substance: NICOTINE
     Dosage: UNK, USES APPROXIMATELY 7-8 PIECES 2 MG DAILY

REACTIONS (3)
  - Drug dependence [Unknown]
  - Dizziness [Unknown]
  - Palpitations [Unknown]
